FAERS Safety Report 21493618 (Version 1)
Quarter: 2022Q4

REPORT INFORMATION
  Report Type: Spontaneous
  Country: US (occurrence: None)
  Receive Date: 20221021
  Receipt Date: 20221021
  Transmission Date: 20230113
  Serious: Yes (Death)
  Sender: FDA-Public Use
  Company Number: None

PATIENT
  Sex: Male
  Weight: 86.85 kg

DRUGS (18)
  1. REVLIMID [Suspect]
     Active Substance: LENALIDOMIDE
     Dosage: OTHER FREQUENCY : 21 ON AND 7 OFF;?
     Route: 048
     Dates: start: 20220525
  2. ALBUTEROL SULFATE HFA [Concomitant]
  3. ALLOPURINOL [Concomitant]
  4. BETAMETHASONE DIPROPIONATE [Concomitant]
  5. COMBIVENT RESPIMAT [Concomitant]
  6. DELESTROGEN [Concomitant]
  7. DOK [Concomitant]
  8. DULERA [Concomitant]
  9. levalbuterol HFA [Concomitant]
  10. LEVOTHYROXINE [Concomitant]
  11. LOSARTAN [Concomitant]
  12. meclizine [Concomitant]
  13. Nexium [Concomitant]
  14. oxybutynin chloride ER [Concomitant]
  15. progesterone micronized [Concomitant]
  16. TRIAMCINOLONE ACETONIDE [Concomitant]
  17. WARFARIN [Concomitant]
  18. WIXELA INHUB [Concomitant]

REACTIONS (1)
  - Death [None]
